FAERS Safety Report 8188478-1 (Version None)
Quarter: 2012Q1

REPORT INFORMATION
  Report Type: 
  Country: None (occurrence: None)
  Receive Date: 20120306
  Receipt Date: 20120228
  Transmission Date: 20120608
  Serious: Yes (Other)
  Sender: FDA-Public Use
  Company Number: PHHY2012NL017516

PATIENT
  Sex: Female

DRUGS (4)
  1. ZOMETA [Suspect]
     Indication: LUNG CANCER METASTATIC
     Dosage: 4 MG/ 100 ML
     Dates: start: 20110215
  2. ZOMETA [Suspect]
     Dosage: 4 MG/ 100 ML
     Dates: start: 20120116
  3. ZOMETA [Suspect]
     Dosage: 4 MG/ 100 ML
     Dates: start: 20120228
  4. FASLODEX [Suspect]

REACTIONS (1)
  - PULMONARY EMBOLISM [None]
